FAERS Safety Report 6173086-4 (Version None)
Quarter: 2009Q2

REPORT INFORMATION
  Report Type: 
  Country: None (occurrence: None)
  Receive Date: 20090430
  Receipt Date: 20090427
  Transmission Date: 20091009
  Serious: No
  Sender: FDA-Public Use
  Company Number: US-JNJFOC-20090406801

PATIENT
  Sex: Female
  Weight: 54.43 kg

DRUGS (4)
  1. DURAGESIC-100 [Suspect]
     Indication: SYSTEMIC LUPUS ERYTHEMATOSUS
     Route: 062
  2. ATACAND [Concomitant]
     Indication: BLOOD PRESSURE
     Route: 048
  3. PLAQUENIL [Concomitant]
     Indication: SYSTEMIC LUPUS ERYTHEMATOSUS
     Route: 048
  4. PROZAC [Concomitant]
     Indication: DEPRESSION
     Route: 048

REACTIONS (3)
  - DRUG ADMINISTERED AT INAPPROPRIATE SITE [None]
  - DRUG DOSE OMISSION [None]
  - PAIN [None]
